FAERS Safety Report 7074105-3 (Version None)
Quarter: 2010Q4

REPORT INFORMATION
  Report Type: 
  Country: None (occurrence: None)
  Receive Date: 20101029
  Receipt Date: 20101028
  Transmission Date: 20110411
  Serious: Yes (Hospitalization, Other)
  Sender: FDA-Public Use
  Company Number: PHHY2010US72802

PATIENT
  Sex: Female

DRUGS (1)
  1. ENABLEX [Suspect]
     Dosage: 15 MG, ONCE A DAY
     Route: 048

REACTIONS (4)
  - ASTHENIA [None]
  - BODY TEMPERATURE INCREASED [None]
  - COMA [None]
  - FEELING HOT [None]
